FAERS Safety Report 11932342 (Version 1)
Quarter: 2016Q1

REPORT INFORMATION
  Report Type: Spontaneous
  Country: US (occurrence: US)
  Receive Date: 20160120
  Receipt Date: 20160120
  Transmission Date: 20160526
  Serious: No
  Sender: FDA-Public Use
  Company Number: US-PFIZER INC-2016021655

PATIENT
  Age: 77 Year

DRUGS (29)
  1. LYRICA [Suspect]
     Active Substance: PREGABALIN
     Dosage: 100 MG, 3X/DAY, (WITH FOOD)
     Route: 048
     Dates: start: 20150908
  2. ATENOLOL. [Concomitant]
     Active Substance: ATENOLOL
     Dosage: 50 MG, 0.5 TABLET,  2X/DAY
     Route: 048
     Dates: start: 20080521
  3. FLUOCINONIDE. [Concomitant]
     Active Substance: FLUOCINONIDE
     Dosage: 0.05 % EXTERNAL SOLUTION; APPLY SPARINGLY TO SCALP ONCE DAILY MONDAY - FRIDAY ONLY
     Dates: start: 20120612
  4. ZETIA [Concomitant]
     Active Substance: EZETIMIBE
     Dosage: 10 MG, DAILY
     Route: 048
     Dates: start: 20060725
  5. LIPITOR [Concomitant]
     Active Substance: ATORVASTATIN CALCIUM
     Dosage: 80 MG, DAILY, (EVERY DAY)
     Route: 048
     Dates: start: 20100719
  6. NORCO [Concomitant]
     Active Substance: ACETAMINOPHEN\HYDROCODONE BITARTRATE
     Indication: PAIN
     Dosage: 1 DF, AS NEEDED, (HYDROCODONE- 10MG- ACETAMINOPHEN 325MG), (4 TIMES DAILY PRN)
     Route: 048
     Dates: start: 20070806
  7. METFORMIN HCL [Concomitant]
     Active Substance: METFORMIN HYDROCHLORIDE
     Dosage: 2000 MG, DAILY
     Route: 048
  8. FINASTERIDE. [Concomitant]
     Active Substance: FINASTERIDE
     Dosage: 5 MG, DAILY, (AS DIRECTED)
     Route: 048
     Dates: start: 20151214
  9. ISOSORBIDE DINITRATE. [Concomitant]
     Active Substance: ISOSORBIDE DINITRATE
     Dosage: 20 MG, AS NEEDED, (TWICE A DAY)
     Route: 048
     Dates: start: 20071108
  10. LONOX [Concomitant]
     Active Substance: ATROPINE SULFATE\DIPHENOXYLATE HYDROCHLORIDE
     Indication: DIARRHOEA
     Dosage: DIPHENOXYLATE HCL 2.5 MG, ATROPINE SULFATE 0.025MG, 1 TO2 TABLETS FOUR TIMES DAILY AS NEEDED
     Route: 048
     Dates: start: 20130613
  11. PROCTOZANE-HC [Concomitant]
     Dosage: 2.5 % RECTAL CREAM, TWICE A DAY TO RECTUM AS NEEDED
     Route: 054
     Dates: start: 20130613
  12. TAMSULOSIN HCL [Concomitant]
     Active Substance: TAMSULOSIN
     Dosage: 0.4 MG, 1X/DAY, (TAKE ONE CAPSULE BY MOUTH 30 MINUTES AFTER EVENING MEAL)
     Route: 048
     Dates: start: 20100607
  13. ENALAPRIL MALEATE. [Concomitant]
     Active Substance: ENALAPRIL MALEATE
     Dosage: 20 MG, 2X/DAY
     Route: 048
     Dates: start: 20100819
  14. TAMSULOSIN HCL [Concomitant]
     Active Substance: TAMSULOSIN
     Dosage: 0.8 MG, 1X/DAY, (DAILY IN EVENING)
     Route: 048
     Dates: start: 20151214
  15. TRIAMCINOLONE ACETONIDE. [Concomitant]
     Active Substance: TRIAMCINOLONE ACETONIDE
     Dosage: 0.1 % EXTERNAL CREAM APPLY TO AFFECTED AREA 2 TO 3 TIMES A DAY
     Dates: start: 20080501
  16. BETAMETHASONE DIPROPIONATE. [Concomitant]
     Active Substance: BETAMETHASONE DIPROPIONATE
     Dosage: 0.05 % EXTERNAL LOTION; APPLY SPARINGLY TO AFFECTED SCALP AND SKIN ONCE DAILY MONDAY - FRIDAY ONLY
     Dates: start: 20130307
  17. FLUTICASONE PROPIONATE. [Concomitant]
     Active Substance: FLUTICASONE PROPIONATE
     Dosage: 50 MCG/ACT NASAL SUSPENSION; USE 2 SPRAYS IN EACH NOSTRIL ONCE DAILY
     Dates: start: 20150212
  18. PREVACID [Concomitant]
     Active Substance: LANSOPRAZOLE
     Dosage: 30 MG, 2X/DAY
     Route: 048
     Dates: start: 20090327
  19. MIRALAX [Concomitant]
     Active Substance: POLYETHYLENE GLYCOL 3350
     Dosage: AS DIRECTED
     Route: 048
     Dates: start: 20080509
  20. NITROSTAT [Suspect]
     Active Substance: NITROGLYCERIN
     Dosage: 0.4 MG, UNK, (AS DIRECTED)
     Route: 060
     Dates: start: 20140501
  21. CLINDAMYCIN PHOSPHATE. [Concomitant]
     Active Substance: CLINDAMYCIN PHOSPHATE
     Dosage: 1 % EXTERNAL GEI; APPLY AND GENTLY MASSAGE INTO AFFECTED AREA(S) TWICE DAILY
     Dates: start: 20120907
  22. PROCTOCREAM HC [Concomitant]
     Active Substance: HYDROCORTISONE
     Dosage: 2.5% CREAM, TWICE A DAY TO RECTUM AS NEEDED
     Route: 054
     Dates: start: 20110118
  23. AMBIEN [Concomitant]
     Active Substance: ZOLPIDEM TARTRATE
     Indication: SLEEP DISORDER
     Dosage: 20 MG, AS NEEDED, (DAILY AT BEDTIME PRN)
     Route: 048
     Dates: start: 20060725
  24. LYRICA [Suspect]
     Active Substance: PREGABALIN
     Dosage: 50 MG, 3X/DAY
     Route: 048
     Dates: start: 20150403, end: 2015
  25. DOXAZOSIN MESYLATE. [Concomitant]
     Active Substance: DOXAZOSIN MESYLATE
     Dosage: 1 MG, 1X/DAY, (DAILY AT BEDTIME)
     Route: 048
     Dates: start: 20140612
  26. MELOXICAM. [Concomitant]
     Active Substance: MELOXICAM
     Dosage: 15 MG, DAILY
     Route: 048
     Dates: start: 20100317
  27. METFORMIN HCL [Concomitant]
     Active Substance: METFORMIN HYDROCHLORIDE
     Dosage: 1500 MG, DAILY WITH EVENING MEAL FOR 2 WEEKS
     Route: 048
     Dates: start: 20070427
  28. OMEPRAZOLE. [Concomitant]
     Active Substance: OMEPRAZOLE
     Dosage: 40 MG, DAILY, (TAKE 1 CAPSULE DAILY ON EMPTY STOMACH AT LEAST 30 MINUTES BEFORE EATING)
     Route: 048
     Dates: start: 20130115
  29. ASPIR-LOW [Concomitant]
     Active Substance: ASPIRIN
     Dosage: 81 MG, 1X/DAY, (ONCE DAILY)
     Route: 048
     Dates: start: 20151204

REACTIONS (1)
  - Abdominal discomfort [Unknown]
